FAERS Safety Report 11596047 (Version 1)
Quarter: 2015Q4

REPORT INFORMATION
  Report Type: Spontaneous
  Country: IT (occurrence: None)
  Receive Date: 20151002
  Receipt Date: 20151002
  Transmission Date: 20160304
  Serious: Yes (Hospitalization, Other)
  Sender: FDA-Public Use
  Company Number: 2015-6448

PATIENT

DRUGS (1)
  1. LANREOTIDE [Suspect]
     Active Substance: LANREOTIDE
     Indication: ACROMEGALY

REACTIONS (10)
  - Injection site swelling [None]
  - Injection site induration [None]
  - Alopecia [None]
  - Injection site pain [None]
  - Electrocardiogram QT prolonged [None]
  - Diabetes mellitus [None]
  - Cholelithiasis [None]
  - Libido decreased [None]
  - Injection site nodule [None]
  - Injection site erythema [None]
